FAERS Safety Report 8505133-6 (Version None)
Quarter: 2012Q3

REPORT INFORMATION
  Report Type: 
  Country: None (occurrence: None)
  Receive Date: 20120712
  Receipt Date: 20120702
  Transmission Date: 20120928
  Serious: Yes (Other)
  Sender: FDA-Public Use
  Company Number: US-009507513-1206USA03896

PATIENT

DRUGS (1)
  1. SINGULAIR [Suspect]
     Indication: RHINITIS ALLERGIC
     Dosage: 1 UNK, UNK
     Route: 048
     Dates: start: 20111031, end: 20120125

REACTIONS (17)
  - ARTHRALGIA [None]
  - CRYING [None]
  - NIGHTMARE [None]
  - SELF ESTEEM DECREASED [None]
  - FEELING ABNORMAL [None]
  - WEIGHT BEARING DIFFICULTY [None]
  - AGGRESSION [None]
  - MOOD SWINGS [None]
  - THYROID FUNCTION TEST ABNORMAL [None]
  - ABNORMAL BEHAVIOUR [None]
  - SELF INJURIOUS BEHAVIOUR [None]
  - SUICIDAL IDEATION [None]
  - VOMITING [None]
  - JOINT EFFUSION [None]
  - PAIN IN EXTREMITY [None]
  - SLEEP APNOEA SYNDROME [None]
  - TREMOR [None]
